FAERS Safety Report 7768541-7 (Version None)
Quarter: 2011Q3

REPORT INFORMATION
  Report Type: 
  Country: None (occurrence: None)
  Receive Date: 20110922
  Receipt Date: 20110204
  Transmission Date: 20111222
  Serious: No
  Sender: FDA-Public Use
  Company Number: US-ASTRAZENECA-2011SE06427

PATIENT
  Sex: Female

DRUGS (2)
  1. SEROQUEL [Suspect]
     Indication: BIPOLAR DISORDER
     Route: 048
     Dates: start: 20070101, end: 20110101
  2. SEROQUEL [Suspect]
     Route: 048
     Dates: start: 20110101

REACTIONS (5)
  - NERVOUSNESS [None]
  - INFLUENZA [None]
  - PAIN [None]
  - RHINORRHOEA [None]
  - DRUG DOSE OMISSION [None]
